FAERS Safety Report 5029944-7 (Version None)
Quarter: 2006Q2

REPORT INFORMATION
  Report Type: 
  Country: None (occurrence: None)
  Receive Date: 20060620
  Receipt Date: 20060614
  Transmission Date: 20061013
  Serious: Yes (Other)
  Sender: FDA-Public Use
  Company Number: 142107

PATIENT
  Age: 50 Year
  Sex: Female
  Weight: 80 kg

DRUGS (3)
  1. QUILONUM RETARD [Suspect]
     Indication: BIPOLAR I DISORDER
     Dosage: 675MG PER DAY
     Route: 048
     Dates: start: 20051201
  2. SEROQUEL [Suspect]
     Indication: BIPOLAR I DISORDER
     Dosage: 450MG PER DAY
     Route: 048
     Dates: start: 20051201
  3. ESCITALOPRAM OXALATE [Concomitant]
     Indication: BIPOLAR I DISORDER
     Dosage: 20MG PER DAY
     Route: 048

REACTIONS (3)
  - ALANINE AMINOTRANSFERASE INCREASED [None]
  - ASPARTATE AMINOTRANSFERASE INCREASED [None]
  - HEPATIC ENZYME INCREASED [None]
